FAERS Safety Report 19136174 (Version 12)
Quarter: 2024Q4

REPORT INFORMATION
  Report Type: Spontaneous
  Country: US (occurrence: US)
  Receive Date: 20210414
  Receipt Date: 20241110
  Transmission Date: 20250115
  Serious: No
  Sender: SANOFI AVENTIS
  Company Number: US-SA-SAC20210409000170

PATIENT
  Age: 47 Year
  Sex: Male
  Weight: 60 kg

DRUGS (2)
  1. CAPRELSA [Suspect]
     Active Substance: VANDETANIB
     Indication: Thyroid cancer
     Dosage: 300 MG, QD
     Route: 048
     Dates: start: 20210320
  2. SYNTHROID [Concomitant]
     Active Substance: LEVOTHYROXINE SODIUM
     Dosage: UNK
     Route: 065

REACTIONS (18)
  - Peripheral swelling [Unknown]
  - Lymphadenopathy [Unknown]
  - Gait disturbance [Unknown]
  - Pain in extremity [Unknown]
  - Blood calcitonin decreased [Unknown]
  - Neck pain [Unknown]
  - Swelling [Unknown]
  - Hunger [Unknown]
  - Gastrointestinal sounds abnormal [Unknown]
  - Blood iron decreased [Unknown]
  - Pyrexia [Unknown]
  - Acne [Not Recovered/Not Resolved]
  - Diarrhoea [Unknown]
  - Dermatitis acneiform [Unknown]
  - Nail infection [Unknown]
  - Hypertension [Unknown]
  - Headache [Unknown]
  - Blood calcium decreased [Unknown]

NARRATIVE: CASE EVENT DATE: 20230301
